FAERS Safety Report 25842236 (Version 2)
Quarter: 2025Q4

REPORT INFORMATION
  Report Type: Report from Study
  Country: CA (occurrence: CA)
  Receive Date: 20250924
  Receipt Date: 20251222
  Transmission Date: 20260118
  Serious: Yes (Other)
  Sender: HLS THERAPEUTICS
  Company Number: CA-HLS-202502400

PATIENT
  Age: 71 Year
  Sex: Male
  Weight: 59 kg

DRUGS (1)
  1. CLOZARIL [Suspect]
     Active Substance: CLOZAPINE
     Indication: Product used for unknown indication
     Route: 048
     Dates: start: 19931212

REACTIONS (11)
  - Breath sounds abnormal [Unknown]
  - Constipation [Unknown]
  - Hyperhidrosis [Unknown]
  - Dizziness [Not Recovered/Not Resolved]
  - Dyspnoea [Unknown]
  - Tachycardia [Recovered/Resolved]
  - Enuresis [Not Recovered/Not Resolved]
  - Sedation [Not Recovered/Not Resolved]
  - Insomnia [Unknown]
  - Tremor [Not Recovered/Not Resolved]
  - Urinary incontinence [Not Recovered/Not Resolved]
